FAERS Safety Report 5563244-1 (Version None)
Quarter: 2007Q4

REPORT INFORMATION
  Report Type: 
  Country: None (occurrence: None)
  Receive Date: 20071214
  Receipt Date: 20071214
  Transmission Date: 20080405
  Serious: Yes (Other)
  Sender: FDA-Public Use
  Company Number: None

PATIENT
  Age: 56 Year
  Sex: Female
  Weight: 50 kg

DRUGS (2)
  1. TYGACIL [Suspect]
     Indication: LUNG INFECTION PSEUDOMONAL
     Dosage: 50MG Q12H IV
     Route: 042
     Dates: start: 20071121, end: 20071205
  2. TYGACIL [Suspect]
     Indication: POSTOPERATIVE FEVER
     Dosage: 50MG Q12H IV
     Route: 042
     Dates: start: 20071121, end: 20071205

REACTIONS (2)
  - HEPATIC FAILURE [None]
  - JAUNDICE [None]
